FAERS Safety Report 8915573 (Version 3)
Quarter: 2012Q4

REPORT INFORMATION
  Report Type: 
  Country: US (occurrence: US)
  Receive Date: 20121119
  Receipt Date: 20121217
  Transmission Date: 20130627
  Serious: Yes (Other)
  Sender: FDA-Public Use
  Company Number: US-JNJFOC-20121107704

PATIENT
  Age: 67 Year
  Sex: Male

DRUGS (1)
  1. REMICADE [Suspect]
     Indication: CROHN^S DISEASE
     Dosage: ^began infliximab for greater than 2-3 years^

Reported as recently having his 20th treatment
     Route: 042
     Dates: start: 2005

REACTIONS (2)
  - Basal cell carcinoma [Unknown]
  - Squamous cell carcinoma [Unknown]
